FAERS Safety Report 9677837 (Version 2)
Quarter: 2014Q1

REPORT INFORMATION
  Report Type: Spontaneous
  Country: DK (occurrence: FR)
  Receive Date: 20131108
  Receipt Date: 20140228
  Transmission Date: 20141002
  Serious: Yes (Hospitalization)
  Sender: FDA-Public Use
  Company Number: FR-FRI-1000050879

PATIENT
  Age: 0 None
  Sex: Male
  Weight: 3.3 kg

DRUGS (4)
  1. ESCITALOPRAM [Suspect]
     Dosage: 20 MG
     Route: 064
     Dates: start: 2012, end: 20130708
  2. ABILIFY [Suspect]
     Dosage: 10 MG
     Route: 064
     Dates: start: 2012, end: 20130708
  3. SERESTA [Suspect]
     Dosage: 50 MG
     Route: 064
     Dates: start: 2012, end: 20130708
  4. TERCIAN [Suspect]
     Dosage: 12.5 MG
     Route: 064
     Dates: start: 2012, end: 20130708

REACTIONS (4)
  - Drug withdrawal syndrome neonatal [Recovered/Resolved]
  - Neonatal hypoxia [Recovered/Resolved]
  - Tremor [Recovered/Resolved]
  - Foetal exposure during pregnancy [Recovered/Resolved]
